FAERS Safety Report 15775083 (Version 3)
Quarter: 2019Q1

REPORT INFORMATION
  Report Type: Spontaneous
  Country: US (occurrence: US)
  Receive Date: 20181231
  Receipt Date: 20190218
  Transmission Date: 20190417
  Serious: No
  Sender: FDA-Public Use
  Company Number: US-JNJFOC-20181224512

PATIENT
  Age: 43 Year
  Sex: Female
  Weight: 65.77 kg

DRUGS (2)
  1. IMODIUM MULTI-SYMPTOM RELIEF [Suspect]
     Active Substance: DIMETHICONE\LOPERAMIDE HYDROCHLORIDE
     Route: 048
  2. IMODIUM MULTI-SYMPTOM RELIEF [Suspect]
     Active Substance: DIMETHICONE\LOPERAMIDE HYDROCHLORIDE
     Indication: DIARRHOEA
     Route: 048

REACTIONS (6)
  - Product physical issue [Unknown]
  - Product complaint [Unknown]
  - Headache [Recovered/Resolved]
  - Refusal of treatment by patient [Unknown]
  - Treatment noncompliance [Unknown]
  - Expired product administered [Unknown]
